FAERS Safety Report 6174869-7 (Version None)
Quarter: 2009Q2

REPORT INFORMATION
  Report Type: 
  Country: None (occurrence: None)
  Receive Date: 20090430
  Receipt Date: 20081205
  Transmission Date: 20091009
  Serious: No
  Sender: FDA-Public Use
  Company Number: US-ASTRAZENECA-2008UW27179

PATIENT
  Age: 88 Year
  Sex: Female
  Weight: 74.8 kg

DRUGS (10)
  1. NEXIUM [Suspect]
     Indication: OESOPHAGEAL HAEMORRHAGE
     Dosage: 20 MG
     Route: 048
  2. OSCAL [Concomitant]
  3. CARBIDOPA LEVO [Concomitant]
     Dosage: 25/100
  4. COZAAR [Concomitant]
     Dosage: 50 MG
  5. INDERAL [Concomitant]
  6. MECLIZINE [Concomitant]
  7. HYDROCHLOROTHIAZIDE [Concomitant]
  8. CHOSTAIPL [Concomitant]
  9. ACIPHEX [Concomitant]
     Dosage: 20 MG
  10. FERROUS SULFATE TAB [Concomitant]

REACTIONS (1)
  - BREAST ENLARGEMENT [None]
